FAERS Safety Report 14382939 (Version 4)
Quarter: 2018Q3

REPORT INFORMATION
  Report Type: Report from Study
  Country: DE (occurrence: DE)
  Receive Date: 20180114
  Receipt Date: 20180830
  Transmission Date: 20181010
  Serious: Yes (Hospitalization)
  Sender: FDA-Public Use
  Company Number: DE-TEVA-2018-DE-843393

PATIENT
  Age: 64 Year
  Sex: Male
  Weight: 66 kg

DRUGS (27)
  1. REVLIMID [Suspect]
     Active Substance: LENALIDOMIDE
     Indication: PLASMA CELL MYELOMA
     Route: 048
     Dates: start: 20170925, end: 20170930
  2. DEXAMETHASONE. [Suspect]
     Active Substance: DEXAMETHASONE
     Route: 065
     Dates: start: 20180116, end: 20180529
  3. SIMVA HENNIG [Concomitant]
     Indication: AORTIC VALVE STENOSIS
     Route: 048
     Dates: start: 20171019
  4. ACC [Concomitant]
     Active Substance: ACETYLCYSTEINE
     Route: 048
  5. AMPHOTERICIN B. [Concomitant]
     Active Substance: AMPHOTERICIN B
     Indication: PROPHYLAXIS
     Route: 048
  6. REVLIMID [Suspect]
     Active Substance: LENALIDOMIDE
     Route: 048
     Dates: start: 20180410, end: 20180430
  7. REVLIMID [Suspect]
     Active Substance: LENALIDOMIDE
     Route: 048
     Dates: start: 20180508, end: 20180528
  8. ACC [Concomitant]
     Active Substance: ACETYLCYSTEINE
     Indication: PROPHYLAXIS
     Route: 048
     Dates: start: 20171019
  9. FORADIL [Concomitant]
     Active Substance: FORMOTEROL FUMARATE
     Indication: CHRONIC OBSTRUCTIVE PULMONARY DISEASE
     Dosage: 48 IU (INTERNATIONAL UNIT)
     Route: 055
  10. REVLIMID [Suspect]
     Active Substance: LENALIDOMIDE
     Dates: start: 20171218, end: 20171230
  11. IRENAT [Concomitant]
     Active Substance: SODIUM PERCHLORATE
     Indication: PROPHYLAXIS
     Route: 048
     Dates: start: 20171019, end: 20171116
  12. AMPHOTERICIN B. [Concomitant]
     Active Substance: AMPHOTERICIN B
     Route: 048
     Dates: start: 20171116
  13. JANUVIA [Concomitant]
     Active Substance: SITAGLIPTIN PHOSPHATE
     Indication: DIABETES MELLITUS
     Dosage: 50 MILLIGRAM DAILY;
     Dates: start: 20171122
  14. ATROVENT [Concomitant]
     Active Substance: IPRATROPIUM BROMIDE
     Indication: CHRONIC OBSTRUCTIVE PULMONARY DISEASE
     Route: 055
  15. ATROVENT [Concomitant]
     Active Substance: IPRATROPIUM BROMIDE
     Route: 055
  16. MIFLONIDE [Concomitant]
     Active Substance: BUDESONIDE
     Indication: CHRONIC OBSTRUCTIVE PULMONARY DISEASE
     Dosage: 200 IU (INTERNATIONAL UNIT)
     Route: 055
     Dates: start: 20171019
  17. RAMIPRIL BETA COMP [Concomitant]
     Indication: DIASTOLIC HYPERTENSION
     Dosage: 5 MILLIGRAM DAILY;
     Route: 048
  18. FORADIL [Concomitant]
     Active Substance: FORMOTEROL FUMARATE
     Dates: start: 20171019
  19. DEXAMETHASONE. [Suspect]
     Active Substance: DEXAMETHASONE
     Indication: PLASMA CELL MYELOMA
     Route: 065
  20. BRILIQUE [Concomitant]
     Active Substance: TICAGRELOR
     Indication: TACHYCARDIA
     Dates: start: 20171019
  21. DEXAMETHASONE. [Suspect]
     Active Substance: DEXAMETHASONE
     Route: 065
     Dates: start: 20171208
  22. PANTOPRAZOL RATIOPHARM [Concomitant]
     Active Substance: PANTOPRAZOLE SODIUM
     Indication: PROPHYLAXIS
     Route: 048
     Dates: start: 20171019
  23. SALBUTAMOL [Concomitant]
     Active Substance: ALBUTEROL
     Indication: CHRONIC OBSTRUCTIVE PULMONARY DISEASE
     Route: 055
  24. MIFLONIDE [Concomitant]
     Active Substance: BUDESONIDE
     Dates: start: 20171019
  25. PRIVIGEN [Concomitant]
     Active Substance: HUMAN IMMUNOGLOBULIN G
     Indication: PROPHYLAXIS
     Route: 041
     Dates: start: 20171116
  26. DEXAMETHASONE. [Suspect]
     Active Substance: DEXAMETHASONE
     Dates: start: 20170925, end: 20171016
  27. IRENAT [Concomitant]
     Active Substance: SODIUM PERCHLORATE
     Route: 048
     Dates: start: 20171019, end: 20171116

REACTIONS (9)
  - Tachycardia [Recovered/Resolved]
  - Diarrhoea [Recovered/Resolved]
  - Diarrhoea [Recovered/Resolved]
  - Acute myocardial infarction [Recovered/Resolved]
  - Clostridium difficile infection [Recovered/Resolved]
  - Probiotic therapy [Recovered/Resolved]
  - Diarrhoea [Unknown]
  - Abdominal pain upper [Recovered/Resolved]
  - Tachyarrhythmia [Recovered/Resolved]

NARRATIVE: CASE EVENT DATE: 20170930
